FAERS Safety Report 5031394-4 (Version None)
Quarter: 2006Q2

REPORT INFORMATION
  Report Type: 
  Country: None (occurrence: None)
  Receive Date: 20060621
  Receipt Date: 20060616
  Transmission Date: 20061013
  Serious: Yes (Other)
  Sender: FDA-Public Use
  Company Number: US-MERCK-0606USA02957

PATIENT
  Age: 69 Year
  Sex: Female

DRUGS (2)
  1. FOSAMAX [Suspect]
     Indication: OSTEOPOROSIS
     Route: 048
     Dates: start: 19990101, end: 20060501
  2. WELLBUTRIN [Concomitant]
     Route: 065

REACTIONS (4)
  - GASTRIC BYPASS [None]
  - GASTRIC DISORDER [None]
  - TOOTH ABSCESS [None]
  - TOOTHACHE [None]
